FAERS Safety Report 7712242-8 (Version None)
Quarter: 2011Q3

REPORT INFORMATION
  Report Type: 
  Country: None (occurrence: None)
  Receive Date: 20110822
  Receipt Date: 20110815
  Transmission Date: 20111222
  Serious: Yes (Death, Other)
  Sender: FDA-Public Use
  Company Number: 2011SP013905

PATIENT
  Age: 34 Year
  Sex: Female
  Weight: 87.9978 kg

DRUGS (3)
  1. CINNAMON TABLET [Concomitant]
  2. NUVARING [Suspect]
     Indication: CONTRACEPTION
     Dates: end: 20071101
  3. NUVARING [Suspect]
     Indication: CONTRACEPTION
     Dates: start: 20071101, end: 20091010

REACTIONS (18)
  - ABDOMINAL PAIN UPPER [None]
  - VISCERAL CONGESTION [None]
  - DEEP VEIN THROMBOSIS [None]
  - CERVICITIS TRICHOMONAL [None]
  - PELVIC PAIN [None]
  - PELVIC MASS [None]
  - OVULATION PAIN [None]
  - PULMONARY CONGESTION [None]
  - PULMONARY EMBOLISM [None]
  - DERMATITIS [None]
  - HYPERCOAGULATION [None]
  - CARDIO-RESPIRATORY ARREST [None]
  - PAIN IN EXTREMITY [None]
  - HYPERTENSION [None]
  - RESPIRATORY TRACT INFECTION [None]
  - ABDOMINAL PAIN LOWER [None]
  - PULSELESS ELECTRICAL ACTIVITY [None]
  - FALL [None]
